FAERS Safety Report 5328027-6 (Version None)
Quarter: 2007Q2

REPORT INFORMATION
  Report Type: 
  Country: None (occurrence: None)
  Receive Date: 20070517
  Receipt Date: 20070508
  Transmission Date: 20071010
  Serious: Yes (Other)
  Sender: FDA-Public Use
  Company Number: GB-PFIZER INC-2007038166

PATIENT
  Age: 14 Year
  Sex: Male

DRUGS (2)
  1. ZARONTIN [Suspect]
     Indication: EPILEPSY
     Route: 048
  2. EPILIM [Concomitant]

REACTIONS (3)
  - EYE MOVEMENT DISORDER [None]
  - MALAISE [None]
  - PETIT MAL EPILEPSY [None]
